FAERS Safety Report 7991392-5 (Version None)
Quarter: 2011Q4

REPORT INFORMATION
  Report Type: 
  Country: None (occurrence: None)
  Receive Date: 20111219
  Receipt Date: 20111215
  Transmission Date: 20120403
  Serious: Yes (Other)
  Sender: FDA-Public Use
  Company Number: US-PFIZER INC-2011305940

PATIENT
  Sex: Male
  Weight: 59.864 kg

DRUGS (3)
  1. CHANTIX [Suspect]
     Indication: SMOKING CESSATION THERAPY
     Dosage: 0.5 MG, 1X/DAY
     Route: 048
  2. KLONOPIN [Concomitant]
     Indication: ANXIETY
     Dosage: UNK
  3. CHANTIX [Suspect]
     Dosage: UNK
     Route: 048

REACTIONS (6)
  - BACK INJURY [None]
  - EMPHYSEMA [None]
  - NECK INJURY [None]
  - CHEST PAIN [None]
  - ABNORMAL DREAMS [None]
  - ROAD TRAFFIC ACCIDENT [None]
